FAERS Safety Report 16846313 (Version 2)
Quarter: 2019Q3

REPORT INFORMATION
  Report Type: Report from Study
  Country: GB (occurrence: GB)
  Receive Date: 20190924
  Receipt Date: 20190924
  Transmission Date: 20191005
  Serious: Yes (Hospitalization)
  Sender: FDA-Public Use
  Company Number: PHHY2019GB219145

PATIENT
  Sex: Female

DRUGS (3)
  1. FOLIC ACID. [Concomitant]
     Active Substance: FOLIC ACID
     Indication: PSORIATIC ARTHROPATHY
     Dosage: 5 MG, 3 TIMES PER WEEK
     Route: 048
  2. COSENTYX [Suspect]
     Active Substance: SECUKINUMAB
     Indication: PSORIATIC ARTHROPATHY
     Dosage: 150 MG, QMO (PREFILLED PEN)
     Route: 058
     Dates: start: 20171211
  3. METHOTREXATE. [Suspect]
     Active Substance: METHOTREXATE
     Indication: PSORIATIC ARTHROPATHY
     Dosage: 15 MG, QW
     Route: 048

REACTIONS (7)
  - Psoriatic arthropathy [Not Recovered/Not Resolved]
  - Heart rate increased [Unknown]
  - Liver function test increased [Unknown]
  - Hyperthyroidism [Unknown]
  - Blood pressure increased [Unknown]
  - Cerebral disorder [Unknown]
  - Arthropathy [Recovered/Resolved]
